FAERS Safety Report 8093624-4 (Version None)
Quarter: 2012Q1

REPORT INFORMATION
  Report Type: 
  Country: None (occurrence: None)
  Receive Date: 20120129
  Receipt Date: 20110921
  Transmission Date: 20120608
  Serious: No
  Sender: FDA-Public Use
  Company Number: US-ABBOTT-11P-163-0856931-00

PATIENT
  Age: 31 Year
  Sex: Female

DRUGS (2)
  1. HUMIRA [Suspect]
     Indication: CROHN'S DISEASE
     Dates: start: 20101201
  2. IMODIUM [Concomitant]
     Indication: DIARRHOEA

REACTIONS (3)
  - DRUG DOSE OMISSION [None]
  - MALAISE [None]
  - DIARRHOEA [None]
